FAERS Safety Report 7457872-6 (Version None)
Quarter: 2011Q2

REPORT INFORMATION
  Report Type: 
  Country: None (occurrence: None)
  Receive Date: 20110504
  Receipt Date: 20110422
  Transmission Date: 20111010
  Serious: Yes (Other)
  Sender: FDA-Public Use
  Company Number: PHHY2010US30022

PATIENT
  Sex: Female
  Weight: 65.306 kg

DRUGS (2)
  1. EXJADE [Suspect]
     Dosage: 1000 MG, DAILY
     Route: 048
  2. EXJADE [Suspect]
     Indication: IRON METABOLISM DISORDER
     Dosage: UNK MG, UNK
     Route: 048
     Dates: start: 20100317

REACTIONS (3)
  - INFECTION [None]
  - SICKLE CELL ANAEMIA WITH CRISIS [None]
  - EYE DISORDER [None]
